FAERS Safety Report 4554100-6 (Version None)
Quarter: 2005Q1

REPORT INFORMATION
  Report Type: 
  Country: None (occurrence: None)
  Receive Date: 20050113
  Receipt Date: 20050113
  Transmission Date: 20050727
  Serious: Yes (Hospitalization, Disabling)
  Sender: FDA-Public Use
  Company Number: None

PATIENT
  Sex: Female
  Weight: 52.1637 kg

DRUGS (1)
  1. NEURONTIN [Suspect]
     Indication: NECK PAIN
     Dosage: ONCE DAILY

REACTIONS (6)
  - ANHEDONIA [None]
  - DEPRESSION [None]
  - FATIGUE [None]
  - PANIC ATTACK [None]
  - SOMNOLENCE [None]
  - SUICIDAL IDEATION [None]
